FAERS Safety Report 8581115-3 (Version None)
Quarter: 2012Q3

REPORT INFORMATION
  Report Type: 
  Country: None (occurrence: None)
  Receive Date: 20120809
  Receipt Date: 20120731
  Transmission Date: 20120928
  Serious: Yes (Hospitalization)
  Sender: FDA-Public Use
  Company Number: US-CELGENEUS-163-21880-12070136

PATIENT
  Sex: Male
  Weight: 78.996 kg

DRUGS (13)
  1. PRANDIN [Concomitant]
     Route: 065
  2. CALCIUM + VITAMIN D [Concomitant]
     Route: 065
  3. OMEPRAZOLE [Concomitant]
     Route: 065
  4. MULTI-VITAMINS [Concomitant]
     Route: 065
  5. CHOLESTYRAMINE [Concomitant]
     Route: 065
  6. REVLIMID [Suspect]
     Indication: MYELODYSPLASTIC SYNDROME
     Dosage: 5 MILLIGRAM
     Route: 048
     Dates: start: 20120620, end: 20120623
  7. PROCRIT [Concomitant]
     Route: 065
  8. WARFARIN SODIUM [Concomitant]
     Route: 065
  9. PERCOCET [Concomitant]
     Route: 065
  10. PREDNISONE TAB [Concomitant]
     Route: 065
  11. CYANOCOBALAMIN [Concomitant]
     Route: 065
  12. REPAGLINIDE [Concomitant]
     Route: 065
  13. FLOMAX [Concomitant]
     Route: 065

REACTIONS (2)
  - ANGIOEDEMA [None]
  - VASCULITIS [None]
